FAERS Safety Report 13205085 (Version 4)
Quarter: 2017Q3

REPORT INFORMATION
  Report Type: Report from Study
  Country: GB (occurrence: GB)
  Receive Date: 20170209
  Receipt Date: 20170811
  Transmission Date: 20171127
  Serious: Yes (Hospitalization, Other)
  Sender: FDA-Public Use
  Company Number: GB-BRISTOL-MYERS SQUIBB COMPANY-BMS-2017-010207

PATIENT
  Sex: Female

DRUGS (1)
  1. ABATACEPT [Suspect]
     Active Substance: ABATACEPT
     Indication: RHEUMATOID ARTHRITIS
     Dosage: 125 MG, QWK
     Route: 058
     Dates: start: 20131101, end: 20170606

REACTIONS (10)
  - Dyspnoea [Unknown]
  - Malaise [Unknown]
  - Sepsis [Unknown]
  - Viral infection [Unknown]
  - Angina pectoris [Unknown]
  - White blood cell count increased [Unknown]
  - Pancytopenia [Unknown]
  - Asthma [Unknown]
  - Hypokalaemia [Unknown]
  - Hypocalcaemia [Unknown]
